FAERS Safety Report 6442709-4 (Version None)
Quarter: 2009Q4

REPORT INFORMATION
  Report Type: 
  Country: None (occurrence: None)
  Receive Date: 20091117
  Receipt Date: 20091106
  Transmission Date: 20100525
  Serious: Yes (Other)
  Sender: FDA-Public Use
  Company Number: US-JNJFOC-20091102845

PATIENT
  Sex: Female
  Weight: 45.36 kg

DRUGS (4)
  1. REMICADE [Suspect]
     Indication: CROHN'S DISEASE
  2. ASTHMA INHALERS [Concomitant]
  3. ALBUTEROL [Concomitant]
  4. ADVAIR DISKUS 100/50 [Concomitant]

REACTIONS (2)
  - HYPERSENSITIVITY [None]
  - RESPIRATORY ARREST [None]
